FAERS Safety Report 18971980 (Version 1)
Quarter: 2021Q1

REPORT INFORMATION
  Report Type: Spontaneous
  Country: US (occurrence: US)
  Receive Date: 20210305
  Receipt Date: 20210305
  Transmission Date: 20210420
  Serious: No
  Sender: FDA-Public Use
  Company Number: US-HIKMA PHARMACEUTICALS USA INC.-US-H14001-20-02822

PATIENT
  Sex: Male
  Weight: 90.72 kg

DRUGS (1)
  1. DESVENLAFAXINE SUCCINATE. [Suspect]
     Active Substance: DESVENLAFAXINE SUCCINATE
     Indication: BIPOLAR DISORDER
     Route: 048

REACTIONS (1)
  - Off label use [Unknown]
